FAERS Safety Report 8016009-5 (Version None)
Quarter: 2011Q4

REPORT INFORMATION
  Report Type: 
  Country: None (occurrence: None)
  Receive Date: 20111230
  Receipt Date: 20111230
  Transmission Date: 20120403
  Serious: No
  Sender: FDA-Public Use
  Company Number: None

PATIENT
  Age: 18 Year
  Sex: Male
  Weight: 49.895 kg

DRUGS (1)
  1. ZYVOX [Suspect]
     Indication: CYSTIC FIBROSIS
     Dosage: 600MG
     Dates: start: 20111203, end: 20111217

REACTIONS (4)
  - SKIN DISORDER [None]
  - TENDERNESS [None]
  - ERYTHEMA [None]
  - PRURITUS [None]
